FAERS Safety Report 10589092 (Version 1)
Quarter: 2014Q4

REPORT INFORMATION
  Report Type: Spontaneous
  Country: US (occurrence: US)
  Receive Date: 20141118
  Receipt Date: 20141118
  Transmission Date: 20150529
  Serious: Yes (Hospitalization)
  Sender: FDA-Public Use
  Company Number: US-GLENMARK GENERICS INC.-2014GMK011976

PATIENT
  Age: 37 Year
  Sex: Female

DRUGS (1)
  1. VERAPAMIL [Suspect]
     Active Substance: VERAPAMIL HYDROCHLORIDE
     Indication: MIGRAINE
     Dosage: 5 DF, UNK
     Route: 048

REACTIONS (18)
  - Overdose [Recovering/Resolving]
  - Neutrophil percentage increased [Recovering/Resolving]
  - Nausea [Recovering/Resolving]
  - Nodal arrhythmia [Recovering/Resolving]
  - Product use issue [Unknown]
  - Pain in extremity [Recovering/Resolving]
  - Hypocalcaemia [Recovering/Resolving]
  - Skin warm [Recovering/Resolving]
  - Dizziness [Recovering/Resolving]
  - Chest pain [Recovering/Resolving]
  - Somnolence [Recovering/Resolving]
  - Blood lactic acid increased [Recovering/Resolving]
  - Neck pain [Recovering/Resolving]
  - Mucosal dryness [Unknown]
  - Blood pressure decreased [Recovering/Resolving]
  - Metabolic acidosis [Recovering/Resolving]
  - Blood creatinine increased [Recovering/Resolving]
  - White blood cell count abnormal [Recovering/Resolving]
